FAERS Safety Report 9536353 (Version 1)
Quarter: 2013Q2

REPORT INFORMATION
  Report Type: Spontaneous
  Country: US (occurrence: None)
  Receive Date: 20130517
  Receipt Date: 20130517
  Transmission Date: 20140414
  Serious: Yes (Other)
  Sender: FDA-Public Use
  Company Number: 1000041897

PATIENT
  Age: 53 Year
  Sex: Male

DRUGS (3)
  1. VIIBRYD [Suspect]
     Indication: DEPRESSION
     Route: 048
     Dates: start: 20130117, end: 20130123
  2. ATENOLOL (ATENOLOL) (ATENOLOL) [Concomitant]
  3. BENICAR (OLMESARTAN MEDOXOMIL) (OLMESARTAN MEDOXOMIL) [Concomitant]

REACTIONS (10)
  - Fatigue [None]
  - Arthralgia [None]
  - Muscle twitching [None]
  - Nausea [None]
  - Somnolence [None]
  - Insomnia [None]
  - Anxiety [None]
  - Dysarthria [None]
  - Blood pressure increased [None]
  - Tinnitus [None]
